FAERS Safety Report 8086783 (Version 6)
Quarter: 2012Q4

REPORT INFORMATION
  Report Type: 
  Country: US (occurrence: US)
  Receive Date: 20110811
  Receipt Date: 20121003
  Transmission Date: 20130627
  Serious: Yes (Hospitalization)
  Sender: FDA-Public Use
  Company Number: US-US-EMD SERONO, INC.-7075219

PATIENT
  Age: 53 Year
  Sex: Female

DRUGS (2)
  1. REBIF [Suspect]
     Indication: MULTIPLE SCLEROSIS
     Route: 058
     Dates: start: 20031008, end: 20110725
  2. REBIF [Suspect]
     Route: 058
     Dates: start: 20120917

REACTIONS (3)
  - Cellulitis [Recovered/Resolved]
  - Abasia [Unknown]
  - Convulsion [Unknown]
